FAERS Safety Report 25930674 (Version 1)
Quarter: 2025Q4

REPORT INFORMATION
  Report Type: Spontaneous
  Country: US (occurrence: None)
  Receive Date: 20251016
  Receipt Date: 20251016
  Transmission Date: 20260117
  Serious: Yes (Hospitalization)
  Sender: FDA-CTU
  Company Number: None

PATIENT
  Age: 80 Year
  Sex: Female

DRUGS (3)
  1. HUMIRA [Suspect]
     Active Substance: ADALIMUMAB
     Indication: Rheumatoid arthritis
     Dosage: NJECT 1 PEN UNDER THE SKIN (SUBCUTANEOUS INJECTION) EVERY 2 WEEKS?
     Route: 058
     Dates: start: 20250207
  2. PROPRANOLOL CAP 120MG ER [Concomitant]
  3. TYLENOL TAB 325MG [Concomitant]

REACTIONS (2)
  - Loss of personal independence in daily activities [None]
  - Pain [None]

NARRATIVE: CASE EVENT DATE: 20251015
